FAERS Safety Report 13277798 (Version 1)
Quarter: 2017Q1

REPORT INFORMATION
  Report Type: Spontaneous
  Country: US (occurrence: US)
  Receive Date: 20170228
  Receipt Date: 20170228
  Transmission Date: 20170428
  Serious: No
  Sender: FDA-Public Use
  Company Number: US-PERRIGO-16US022493

PATIENT
  Age: 61 Year
  Sex: Female
  Weight: 45.35 kg

DRUGS (3)
  1. AZELASTINE HYDROCHLORIDE. [Suspect]
     Active Substance: AZELASTINE HYDROCHLORIDE
     Dosage: 1/2 SPRAY IN EACH NOSTRIL, QD, PRN
     Route: 045
     Dates: start: 200110, end: 20161204
  2. AZELASTINE HYDROCHLORIDE. [Suspect]
     Active Substance: AZELASTINE HYDROCHLORIDE
     Indication: SEASONAL ALLERGY
     Dosage: 2 SPRAYS IN EACH NOSTRIL, QHS, PRN
     Route: 045
     Dates: start: 201606, end: 201606
  3. NASACORT [Concomitant]
     Active Substance: TRIAMCINOLONE ACETONIDE
     Indication: PRODUCT USED FOR UNKNOWN INDICATION
     Dosage: UNKNOWN, PRN
     Route: 045
     Dates: start: 201606

REACTIONS (4)
  - Tinnitus [Recovering/Resolving]
  - Underdose [Recovered/Resolved]
  - Hypoacusis [Recovering/Resolving]
  - Somnolence [Recovered/Resolved]

NARRATIVE: CASE EVENT DATE: 201606
